FAERS Safety Report 4823930-5 (Version None)
Quarter: 2005Q4

REPORT INFORMATION
  Report Type: 
  Country: None (occurrence: None)
  Receive Date: 20051109
  Receipt Date: 20051107
  Transmission Date: 20060501
  Serious: Yes (Hospitalization)
  Sender: FDA-Public Use
  Company Number: FR-SANOFI-SYNTHELABO-F01200502341

PATIENT
  Sex: Male
  Weight: 93 kg

DRUGS (6)
  1. OXALIPLATIN [Suspect]
     Route: 042
     Dates: start: 20051025, end: 20051025
  2. FLUOROURACIL [Suspect]
     Route: 042
     Dates: start: 20051025, end: 20051026
  3. LEUCOVORIN [Suspect]
     Route: 042
     Dates: start: 20051025, end: 20051026
  4. RADIOTHERAPY [Concomitant]
     Dosage: TOTAL DOSE OF FRACTION ADMINISTERED BEFORE SAE:
     Route: 050
     Dates: start: 20051010, end: 20051104
  5. XYLOCAINE [Concomitant]
  6. ACETAMINOPHEN [Concomitant]
     Dosage: 4 G

REACTIONS (2)
  - DYSPHAGIA [None]
  - OESOPHAGITIS [None]
